FAERS Safety Report 6204707-5 (Version None)
Quarter: 2009Q2

REPORT INFORMATION
  Report Type: 
  Country: None (occurrence: None)
  Receive Date: 20090527
  Receipt Date: 20090518
  Transmission Date: 20091009
  Serious: Yes (Other)
  Sender: FDA-Public Use
  Company Number: PHHY2009JP07847

PATIENT
  Age: 29 Year
  Sex: Male

DRUGS (4)
  1. TASIGNA [Suspect]
     Indication: CHRONIC MYELOID LEUKAEMIA TRANSFORMATION
     Dosage: 800 MG, QD
     Route: 048
     Dates: start: 20090219, end: 20090304
  2. TASIGNA [Suspect]
     Dosage: 200 MG/DAY
     Route: 048
     Dates: start: 20090401, end: 20090401
  3. TASIGNA [Suspect]
     Dosage: UNK
     Route: 048
     Dates: start: 20090401, end: 20090513
  4. VINCRISTINE SULFATE [Concomitant]
     Indication: CHRONIC MYELOID LEUKAEMIA
     Dosage: UNK
     Dates: end: 20090304

REACTIONS (6)
  - ELECTROCARDIOGRAM QT PROLONGED [None]
  - FACE OEDEMA [None]
  - NEUTROPHIL COUNT DECREASED [None]
  - PANCYTOPENIA [None]
  - RASH [None]
  - WHITE BLOOD CELL COUNT INCREASED [None]
